FAERS Safety Report 6029813-X (Version None)
Quarter: 2008Q4

REPORT INFORMATION
  Report Type: 
  Country: None (occurrence: None)
  Receive Date: 20081222
  Receipt Date: 20080919
  Transmission Date: 20090506
  Serious: No
  Sender: FDA-Public Use
  Company Number: US-WYE-H06069208

PATIENT
  Age: 57 Year
  Sex: Female

DRUGS (7)
  1. PRISTIQ [Suspect]
     Indication: DEPRESSION
     Dosage: 50 MG 1X PER 1SEC,ORAL
     Route: 048
     Dates: start: 20080901
  2. LEVOTHYROXINE SODIUM [Concomitant]
  3. LOTREL [Concomitant]
  4. HYDROCODONE BITARTRATE [Concomitant]
  5. MOBIC [Concomitant]
  6. AMITRIPTYLINE HCL [Concomitant]
  7. ZANAFLEX [Concomitant]

REACTIONS (3)
  - COLOUR BLINDNESS [None]
  - CONDITION AGGRAVATED [None]
  - MYOPIA [None]
